FAERS Safety Report 13115612 (Version 2)
Quarter: 2017Q2

REPORT INFORMATION
  Report Type: Report from Study
  Country: US (occurrence: US)
  Receive Date: 20170114
  Receipt Date: 20170502
  Transmission Date: 20170830
  Serious: No
  Sender: FDA-Public Use
  Company Number: PHEH2017US001056

PATIENT
  Age: 40 Year
  Sex: Male

DRUGS (4)
  1. BOTOX [Concomitant]
     Active Substance: ONABOTULINUMTOXINA
     Indication: CEREBROVASCULAR ACCIDENT
     Dosage: UNK
     Route: 065
  2. AFINITOR [Suspect]
     Active Substance: EVEROLIMUS
     Indication: BENIGN RENAL NEOPLASM
  3. AFINITOR [Suspect]
     Active Substance: EVEROLIMUS
     Indication: TUBEROUS SCLEROSIS
     Dosage: 10 MG, QD
     Route: 048
     Dates: start: 20160407
  4. BOTOX [Concomitant]
     Active Substance: ONABOTULINUMTOXINA
     Indication: ASTHENIA

REACTIONS (8)
  - Balance disorder [Unknown]
  - Osteoarthritis [Recovering/Resolving]
  - Weight increased [Unknown]
  - Gait disturbance [Unknown]
  - Peripheral swelling [Unknown]
  - Pain in extremity [Recovering/Resolving]
  - Limb discomfort [Unknown]
  - Blood pressure increased [Unknown]

NARRATIVE: CASE EVENT DATE: 20170106
